FAERS Safety Report 22604284 (Version 1)
Quarter: 2023Q2

REPORT INFORMATION
  Report Type: Spontaneous
  Country: FR (occurrence: FR)
  Receive Date: 20230615
  Receipt Date: 20230615
  Transmission Date: 20230721
  Serious: Yes (Life-Threatening, Other)
  Sender: FDA-Public Use
  Company Number: None

PATIENT
  Age: 68 Year
  Sex: Male
  Weight: 77 kg

DRUGS (14)
  1. LOVENOX [Interacting]
     Active Substance: ENOXAPARIN SODIUM
     Indication: Thrombosis prophylaxis
     Dosage: 1 DF, QD
     Route: 058
     Dates: start: 20230512
  2. KARDEGIC [Interacting]
     Active Substance: ASPIRIN DL-LYSINE
     Indication: Cardiovascular event prophylaxis
     Dosage: 1 DF, QD
     Route: 048
     Dates: start: 20221013, end: 20230516
  3. PHLOROGLUCINOL [Concomitant]
     Active Substance: PHLOROGLUCINOL
     Dosage: 6 DF, QD
     Route: 048
     Dates: start: 20230512
  4. CYANOCOBALAMIN [Concomitant]
     Active Substance: CYANOCOBALAMIN
     Dosage: 250 NG, Q10D
     Route: 048
     Dates: start: 20221108
  5. CHOLECALCIFEROL [Concomitant]
     Active Substance: CHOLECALCIFEROL
     Dosage: 1 DF, QM
     Route: 048
     Dates: start: 20210923
  6. PRAVASTATIN SODIUM [Concomitant]
     Active Substance: PRAVASTATIN SODIUM
     Dosage: 10 MG, QD
     Route: 048
     Dates: start: 20221214, end: 20230512
  7. PRAVASTATIN SODIUM [Concomitant]
     Active Substance: PRAVASTATIN SODIUM
     Dosage: 20 MG, QD
     Route: 048
     Dates: start: 20230512, end: 20230513
  8. SKENAN [Concomitant]
     Active Substance: MORPHINE SULFATE
     Dosage: 40 MG, QD
     Route: 048
     Dates: start: 20230419, end: 20230515
  9. CILASTATIN SODIUM\IMIPENEM [Concomitant]
     Active Substance: CILASTATIN SODIUM\IMIPENEM
     Dosage: 3 DF, QD
     Route: 042
     Dates: start: 20230513, end: 20230515
  10. LANSOPRAZOLE [Concomitant]
     Active Substance: LANSOPRAZOLE
     Dosage: 15 MG, QD
     Route: 048
     Dates: start: 20220620
  11. AMITRIPTYLINE HYDROCHLORIDE [Concomitant]
     Active Substance: AMITRIPTYLINE HYDROCHLORIDE
     Dosage: 1 ML, QD
     Route: 048
     Dates: start: 20180314
  12. FENOFIBRATE [Concomitant]
     Active Substance: FENOFIBRATE
     Dosage: 1 DF, QD
     Route: 048
     Dates: start: 20221123, end: 20230512
  13. POLYETHYLENE GLYCOL 3350 [Concomitant]
     Active Substance: POLYETHYLENE GLYCOL 3350
     Dosage: 1 DF, QD
     Route: 048
     Dates: start: 20221024
  14. DOLIPRANE [Concomitant]
     Active Substance: ACETAMINOPHEN
     Dosage: 2 G, QD
     Route: 048
     Dates: start: 20230519, end: 20230520

REACTIONS (2)
  - Shock haemorrhagic [Recovered/Resolved]
  - Drug interaction [Recovered/Resolved]

NARRATIVE: CASE EVENT DATE: 20230315
